FAERS Safety Report 23251776 (Version 1)
Quarter: 2023Q4

REPORT INFORMATION
  Report Type: Spontaneous
  Country: FR (occurrence: None)
  Receive Date: 20231201
  Receipt Date: 20231201
  Transmission Date: 20240109
  Serious: Yes (Other)
  Sender: FDA-Public Use
  Company Number: 2023A270699

PATIENT
  Age: 6 Week
  Sex: Male
  Weight: 3 kg

DRUGS (3)
  1. BEYFORTUS [Suspect]
     Active Substance: NIRSEVIMAB-ALIP
     Indication: Prophylaxis
     Dosage: ONE DOSE FOR B?B? LESS THAN 5 KG
     Route: 030
     Dates: start: 20230929, end: 20230929
  2. ESOMEPRAZOLE [Concomitant]
     Active Substance: ESOMEPRAZOLE
  3. POLYSILANE UPSA, [Concomitant]

REACTIONS (3)
  - Hypotonia [Recovered/Resolved]
  - Malaise [Recovered/Resolved]
  - Pallor [Recovered/Resolved]

NARRATIVE: CASE EVENT DATE: 20230929
